FAERS Safety Report 23682468 (Version 1)
Quarter: 2024Q1

REPORT INFORMATION
  Report Type: Spontaneous
  Country: US (occurrence: None)
  Receive Date: 20240327
  Receipt Date: 20240327
  Transmission Date: 20240410
  Serious: Yes (Other)
  Sender: FDA-Public Use
  Company Number: None

PATIENT
  Sex: Female

DRUGS (11)
  1. LENALIDOMIDE [Suspect]
     Active Substance: LENALIDOMIDE
     Indication: Plasma cell myeloma
     Dosage: FREQUENCY : DAILY;?
     Route: 048
     Dates: start: 20230915
  2. ACYCLOVIR [Concomitant]
     Active Substance: ACYCLOVIR
  3. ALLEGRA ALRG [Concomitant]
  4. ASPIRIN [Concomitant]
     Active Substance: ASPIRIN
  5. BIOTIN [Concomitant]
     Active Substance: BIOTIN
  6. CALCIUM 500 CHW + D3 [Concomitant]
  7. CLARITIN [Concomitant]
     Active Substance: LORATADINE
  8. CLONIDINE [Concomitant]
     Active Substance: CLONIDINE
  9. DARZALEX [Concomitant]
     Active Substance: DARATUMUMAB
  10. DEXAMETHASONE [Concomitant]
     Active Substance: DEXAMETHASONE
  11. FLUTICASONE SPR [Concomitant]

REACTIONS (2)
  - Surgery [None]
  - Therapy interrupted [None]
